FAERS Safety Report 4602880-3 (Version None)
Quarter: 2005Q1

REPORT INFORMATION
  Report Type: 
  Country: None (occurrence: None)
  Receive Date: 20050309
  Receipt Date: 20050210
  Transmission Date: 20050727
  Serious: Yes (Hospitalization)
  Sender: FDA-Public Use
  Company Number: ES-GLAXOSMITHKLINE-B0371562A

PATIENT
  Age: 80 Year
  Sex: Male

DRUGS (3)
  1. AMOXICILLIN [Suspect]
     Indication: PROPHYLAXIS
     Dosage: 500MG SEE DOSAGE TEXT
     Route: 048
     Dates: start: 20041226, end: 20041231
  2. PARACETAMOL [Suspect]
     Indication: ILL-DEFINED DISORDER
     Dosage: 500MG THREE TIMES PER DAY
     Route: 048
     Dates: start: 20041222, end: 20050101
  3. AMOXICILLIN AND CLAVULANATE POTASSIUM [Suspect]
     Indication: PROPHYLAXIS
     Dosage: 500MG THREE TIMES PER DAY
     Route: 048
     Dates: start: 20041222, end: 20041225

REACTIONS (13)
  - CHOLESTASIS [None]
  - CONFUSIONAL STATE [None]
  - ENCEPHALOPATHY [None]
  - FATIGUE [None]
  - FEELING ABNORMAL [None]
  - HEPATIC STEATOSIS [None]
  - HEPATORENAL SYNDROME [None]
  - HYPERBILIRUBINAEMIA [None]
  - JAUNDICE [None]
  - LIPOMATOSIS [None]
  - MALAISE [None]
  - PROTHROMBIN TIME SHORTENED [None]
  - PRURITUS [None]
